FAERS Safety Report 12059297 (Version 1)
Quarter: 2016Q1

REPORT INFORMATION
  Report Type: Spontaneous
  Country: US (occurrence: None)
  Receive Date: 20160209
  Receipt Date: 20160209
  Transmission Date: 20160526
  Serious: No
  Sender: FDA-Public Use
  Company Number: None

PATIENT
  Age: 57 Year
  Sex: Male

DRUGS (1)
  1. BOTOX [Suspect]
     Active Substance: ONABOTULINUMTOXINA
     Indication: MIGRAINE
     Dosage: 155 UNITS Q90 DAYS IM
     Route: 030
     Dates: start: 20151030, end: 20151202

REACTIONS (2)
  - Migraine [None]
  - Drug ineffective [None]

NARRATIVE: CASE EVENT DATE: 20160205
